FAERS Safety Report 7470178-4 (Version None)
Quarter: 2011Q2

REPORT INFORMATION
  Report Type: 
  Country: None (occurrence: None)
  Receive Date: 20110510
  Receipt Date: 20110504
  Transmission Date: 20111010
  Serious: Yes (Other)
  Sender: FDA-Public Use
  Company Number: B0717905A

PATIENT
  Sex: Female
  Weight: 90 kg

DRUGS (1)
  1. CEFUROXIME AXETIL [Suspect]
     Route: 048

REACTIONS (10)
  - ACCIDENTAL EXPOSURE [None]
  - DYSPNOEA [None]
  - ASTHENIA [None]
  - DIARRHOEA [None]
  - THROAT TIGHTNESS [None]
  - SYNCOPE [None]
  - PRURITUS [None]
  - VOMITING [None]
  - CARDIAC DISORDER [None]
  - ERYTHEMA [None]
